FAERS Safety Report 8991278 (Version 1)
Quarter: 2012Q4

REPORT INFORMATION
  Report Type: Report from Study
  Country: CA (occurrence: CA)
  Receive Date: 20121231
  Receipt Date: 20121231
  Transmission Date: 20130627
  Serious: Yes (Other)
  Sender: FDA-Public Use
  Company Number: CA-ROCHE-1169066

PATIENT
  Age: 43 Year
  Sex: Female

DRUGS (2)
  1. OMALIZUMAB [Suspect]
     Indication: ASTHMA
     Dosage: date of the last dose prior to SAE : 15/jul/2008
     Route: 058
     Dates: start: 20080723
  2. OMALIZUMAB [Suspect]
     Route: 065
     Dates: start: 20080715

REACTIONS (8)
  - Nasal congestion [Not Recovered/Not Resolved]
  - Sinusitis [Unknown]
  - Feeding disorder [Unknown]
  - Bronchospasm [Unknown]
  - Asthma [Unknown]
  - Influenza like illness [Unknown]
  - Nausea [Unknown]
  - Fatigue [Unknown]
